FAERS Safety Report 8912056 (Version 8)
Quarter: 2014Q2

REPORT INFORMATION
  Report Type: Spontaneous
  Country: US (occurrence: US)
  Receive Date: 20121115
  Receipt Date: 20140618
  Transmission Date: 20141212
  Serious: Yes (Hospitalization, Other)
  Sender: FDA-Public Use
  Company Number: US-009507513-1211USA005926

PATIENT
  Sex: Female
  Weight: 58.96 kg

DRUGS (2)
  1. NUVARING [Suspect]
     Indication: CONTRACEPTION
     Dosage: UNK
     Route: 067
     Dates: start: 20031008, end: 20110110
  2. NUVARING [Suspect]
     Indication: POLYCYSTIC OVARIES

REACTIONS (22)
  - Renal failure acute [Unknown]
  - Intracranial venous sinus thrombosis [Recovering/Resolving]
  - Leukocytosis [Unknown]
  - Sinusitis [Unknown]
  - Wisdom teeth removal [Unknown]
  - Allergy to animal [Unknown]
  - Glaucoma [Unknown]
  - Headache [Not Recovered/Not Resolved]
  - Amenorrhoea [Unknown]
  - Cervical dysplasia [Unknown]
  - Strabismus [Unknown]
  - Drug hypersensitivity [Unknown]
  - Poor quality sleep [Unknown]
  - Amnesia [Unknown]
  - Rash [Unknown]
  - Visual impairment [Unknown]
  - Encephalomalacia [Unknown]
  - Arnold-Chiari malformation [Unknown]
  - Nervous system disorder [Unknown]
  - Jugular vein thrombosis [Unknown]
  - Venous occlusion [Unknown]
  - Off label use [Unknown]
